FAERS Safety Report 7804958-X (Version None)
Quarter: 2011Q4

REPORT INFORMATION
  Report Type: 
  Country: None (occurrence: None)
  Receive Date: 20111010
  Receipt Date: 20110927
  Transmission Date: 20120403
  Serious: Yes (Hospitalization, Other)
  Sender: FDA-Public Use
  Company Number: PHHY2011US88596

PATIENT
  Age: 37 Year
  Sex: Female

DRUGS (5)
  1. LOXAPINE [Suspect]
     Dosage: UNK
  2. AMLODIPINE [Suspect]
     Dosage: UNK
  3. TRAMADOL HCL [Suspect]
     Dosage: UNK
  4. CARBAMAZEPINE [Suspect]
     Dosage: UNK
  5. WARFARIN SODIUM [Suspect]
     Dosage: UNK

REACTIONS (7)
  - DISSEMINATED INTRAVASCULAR COAGULATION [None]
  - TOXICITY TO VARIOUS AGENTS [None]
  - EXTREMITY NECROSIS [None]
  - CARDIOGENIC SHOCK [None]
  - HEART RATE INCREASED [None]
  - BLOOD GLUCOSE ABNORMAL [None]
  - BLOOD PRESSURE DECREASED [None]
